FAERS Safety Report 22647250 (Version 1)
Quarter: 2023Q2

REPORT INFORMATION
  Report Type: Spontaneous
  Country: GB (occurrence: GB)
  Receive Date: 20230627
  Receipt Date: 20230627
  Transmission Date: 20230722
  Serious: Yes (Life-Threatening, Other)
  Sender: FDA-Public Use
  Company Number: GB-MHRA-MED-202306222249581550-KPMNT

PATIENT
  Age: 19 Year
  Sex: Female
  Weight: 90 kg

DRUGS (1)
  1. SUGAMMADEX SODIUM [Suspect]
     Active Substance: SUGAMMADEX SODIUM
     Indication: Neuromuscular blockade
     Dosage: 180 MG STAT INJECTION

REACTIONS (1)
  - Bradycardia [Recovered/Resolved]
